FAERS Safety Report 21682596 (Version 15)
Quarter: 2023Q1

REPORT INFORMATION
  Report Type: Report from Study
  Country: CA (occurrence: CA)
  Receive Date: 20221205
  Receipt Date: 20230222
  Transmission Date: 20230418
  Serious: Yes (Hospitalization, Other)
  Sender: FDA-Public Use
  Company Number: CA-HLS-202201960

PATIENT
  Age: 61 Year
  Sex: Male

DRUGS (11)
  1. CLOZARIL [Suspect]
     Active Substance: CLOZAPINE
     Indication: Product used for unknown indication
     Route: 065
  2. CLOZARIL [Suspect]
     Active Substance: CLOZAPINE
     Indication: Product used for unknown indication
     Route: 048
     Dates: end: 20230118
  3. CLOZARIL [Suspect]
     Active Substance: CLOZAPINE
     Indication: Product used for unknown indication
     Dosage: BID
     Route: 048
     Dates: start: 20151106, end: 20221024
  4. CLOZARIL [Suspect]
     Active Substance: CLOZAPINE
     Indication: Product used for unknown indication
     Dosage: FROM DEC-2022: 50MG OF CLOZARIL 3 TIMES A DAY
     Route: 048
  5. PANTOPRAZOLE SODIUM [Concomitant]
     Active Substance: PANTOPRAZOLE SODIUM
     Indication: Product used for unknown indication
     Route: 065
  6. WARFARIN [Concomitant]
     Active Substance: WARFARIN
     Indication: Product used for unknown indication
     Route: 065
  7. VITAMINS [Concomitant]
     Active Substance: VITAMINS
     Indication: Product used for unknown indication
     Route: 065
  8. CHLORHEXIDINE [Concomitant]
     Active Substance: CHLORHEXIDINE
     Indication: Product used for unknown indication
     Route: 065
  9. ATIVAN [Concomitant]
     Active Substance: LORAZEPAM
     Indication: Product used for unknown indication
     Route: 065
  10. Ristorolax [Concomitant]
     Indication: Product used for unknown indication
     Route: 065
  11. Sennokot [Concomitant]
     Indication: Product used for unknown indication
     Route: 065

REACTIONS (29)
  - Neutropenia [Recovered/Resolved]
  - Neutropenia [Recovered/Resolved]
  - Neutrophil count decreased [Recovered/Resolved]
  - Neutrophil count increased [Recovered/Resolved]
  - Agitation [Unknown]
  - Neutrophil count increased [Unknown]
  - Laboratory test abnormal [Unknown]
  - Delirium [Unknown]
  - Diarrhoea [Unknown]
  - Confusional state [Not Recovered/Not Resolved]
  - Anal incontinence [Unknown]
  - Insomnia [Unknown]
  - Delusion [Unknown]
  - Hallucination, tactile [Unknown]
  - Cognitive disorder [Unknown]
  - Malaise [Unknown]
  - Palpitations [Recovered/Resolved]
  - Paranoia [Unknown]
  - Hypersomnia [Unknown]
  - Pneumonia [Not Recovered/Not Resolved]
  - Bone marrow disorder [Unknown]
  - Psychiatric decompensation [Unknown]
  - Psychotic symptom [Unknown]
  - Tobacco user [Not Recovered/Not Resolved]
  - Abnormal behaviour [Unknown]
  - White blood cell count increased [Recovered/Resolved]
  - White blood cell count decreased [Recovered/Resolved]
  - White blood cell count decreased [Recovered/Resolved]
  - White blood cell count decreased [Unknown]

NARRATIVE: CASE EVENT DATE: 20221024
